FAERS Safety Report 9180705 (Version 2)
Quarter: 2013Q2

REPORT INFORMATION
  Report Type: Spontaneous
  Country: JP (occurrence: None)
  Receive Date: 20130320
  Receipt Date: 20130415
  Transmission Date: 20140414
  Serious: Yes (Other)
  Sender: FDA-Public Use
  Company Number: JP-010110

PATIENT
  Age: 82 Year
  Sex: Male

DRUGS (7)
  1. GONAX [Suspect]
     Indication: PROSTATE CANCER
     Route: 058
     Dates: start: 20121105, end: 20121105
  2. CASODEX [Concomitant]
  3. ALLEGRA [Concomitant]
  4. CELESTAMINE /00252801 [Concomitant]
  5. DIAMMONIUM GLYCYRRHIZINATE [Concomitant]
  6. SAXIZON [Concomitant]
  7. WARFARIN [Concomitant]

REACTIONS (4)
  - Pyrexia [None]
  - Erythema [None]
  - Injection site induration [None]
  - Malaise [None]
